FAERS Safety Report 4772583-3 (Version None)
Quarter: 2005Q3

REPORT INFORMATION
  Report Type: 
  Country: None (occurrence: None)
  Receive Date: 20050916
  Receipt Date: 20050916
  Transmission Date: 20060218
  Serious: Yes (Death)
  Sender: FDA-Public Use
  Company Number: None

PATIENT
  Age: 31 Year
  Sex: Female
  Weight: 53.5 kg

DRUGS (13)
  1. ACTIQ [Suspect]
     Indication: PAIN
     Dosage: 800MCG-1 LOLLIPOP PRN SL
     Route: 060
     Dates: start: 20050604, end: 20050605
  2. ENDOCET [Concomitant]
  3. PROAMATINE [Concomitant]
  4. DIASTAT [Concomitant]
  5. TUSSIONEX SUSPENSION [Concomitant]
  6. PREDNISONE [Concomitant]
  7. ALPRAZOLAM [Concomitant]
  8. ETHYL CHLORIDE [Concomitant]
  9. AMBIEN [Concomitant]
  10. Z-PACK [Concomitant]
  11. PROVIGIL [Concomitant]
  12. METHOCARBAMOL [Concomitant]
  13. VIVELLE [Concomitant]

REACTIONS (1)
  - DEATH [None]
